FAERS Safety Report 9134734 (Version 1)
Quarter: 2013Q1

REPORT INFORMATION
  Report Type: Spontaneous
  Country: US (occurrence: US)
  Receive Date: 20130304
  Receipt Date: 20130304
  Transmission Date: 20140127
  Serious: No
  Sender: FDA-Public Use
  Company Number: US-PFIZER INC-2013075069

PATIENT
  Age: 52 Year
  Sex: Female
  Weight: 79.37 kg

DRUGS (5)
  1. LYRICA [Suspect]
     Indication: NEUROPATHY PERIPHERAL
     Dosage: ONE CAPSULE OF 200 MG IN THE MORNING AND TWO CAPSULES OF 200 MG AT NIGHT
     Route: 048
     Dates: end: 201302
  2. LYRICA [Suspect]
     Indication: FIBROMYALGIA
  3. CELEBREX [Concomitant]
     Indication: ARTHRITIS
     Dosage: UNK, DAILY
  4. ALEVE [Concomitant]
     Indication: PAIN
     Dosage: UNK, 2X/DAY
  5. ALEVE [Concomitant]
     Indication: ARTHRITIS

REACTIONS (1)
  - Pain in extremity [Not Recovered/Not Resolved]
